FAERS Safety Report 13042021 (Version 1)
Quarter: 2016Q4

REPORT INFORMATION
  Report Type: Spontaneous
  Country: FR (occurrence: FR)
  Receive Date: 20161219
  Receipt Date: 20161219
  Transmission Date: 20170207
  Serious: Yes (Life-Threatening, Hospitalization)
  Sender: FDA-Public Use
  Company Number: FR-GE HEALTHCARE MEDICAL DIAGNOSTICS-VISP-PR-1612S-0695

PATIENT
  Age: 67 Year
  Sex: Female

DRUGS (2)
  1. VISIPAQUE [Suspect]
     Active Substance: IODIXANOL
     Indication: DIAGNOSTIC PROCEDURE
  2. VISIPAQUE [Suspect]
     Active Substance: IODIXANOL
     Indication: ARTERIAL DISORDER
     Dosage: DOSE NOT REPORTED
     Route: 042
     Dates: start: 20160929, end: 20160929

REACTIONS (1)
  - Cardiogenic shock [Unknown]

NARRATIVE: CASE EVENT DATE: 20160929
